FAERS Safety Report 23735599 (Version 1)
Quarter: 2024Q2

REPORT INFORMATION
  Report Type: Spontaneous
  Country: US (occurrence: None)
  Receive Date: 20240411
  Receipt Date: 20240411
  Transmission Date: 20240715
  Serious: No
  Sender: FDA-Public Use
  Company Number: None

PATIENT
  Age: 64 Year
  Sex: Female

DRUGS (1)
  1. COMETRIQ [Suspect]
     Active Substance: CABOZANTINIB S-MALATE
     Indication: Thyroid cancer
     Dosage: FREQUENCY : DAILY;?
     Route: 048
     Dates: start: 20240119

REACTIONS (2)
  - Confusional state [None]
  - Asthenia [None]

NARRATIVE: CASE EVENT DATE: 20240314
